FAERS Safety Report 21463097 (Version 1)
Quarter: 2022Q4

REPORT INFORMATION
  Report Type: Report from Study
  Country: US (occurrence: US)
  Receive Date: 20221017
  Receipt Date: 20221017
  Transmission Date: 20230113
  Serious: No
  Sender: FDA-Public Use
  Company Number: US-ABBVIE-4143412

PATIENT
  Age: 36 Year
  Sex: Male

DRUGS (9)
  1. RINVOQ [Suspect]
     Active Substance: UPADACITINIB
     Indication: Psoriasis
     Dosage: 15 MG
     Route: 048
  2. PFIZER-BIONTECH COVID-19 VACCINE [Concomitant]
     Active Substance: TOZINAMERAN
     Indication: COVID-19 immunisation
     Route: 030
  3. 20 mg Dicyclomine HCL [Concomitant]
     Indication: Product used for unknown indication
     Route: 065
  4. 25 mg Promethazine HCL [Concomitant]
     Indication: Product used for unknown indication
     Route: 065
  5. 500 mg Methocarbamol [Concomitant]
     Indication: Product used for unknown indication
     Dosage: 500 MG
     Route: 065
  6. PROPRANOLOL HYDROCHLORIDE [Concomitant]
     Active Substance: PROPRANOLOL HYDROCHLORIDE
     Indication: Product used for unknown indication
     Dosage: 10 MG
     Route: 065
  7. HYOSCYAMINE SULFATE [Concomitant]
     Active Substance: HYOSCYAMINE SULFATE
     Indication: Product used for unknown indication
     Dosage: 0.125 MG
     Route: 065
  8. 20 mg Prednisone [Concomitant]
     Indication: Product used for unknown indication
     Route: 065
  9. 2 mg Diazepam [Concomitant]
     Indication: Product used for unknown indication
     Route: 065

REACTIONS (2)
  - Unevaluable event [Unknown]
  - Drug ineffective [Unknown]

NARRATIVE: CASE EVENT DATE: 20220901
